FAERS Safety Report 7937443-5 (Version None)
Quarter: 2011Q4

REPORT INFORMATION
  Report Type: 
  Country: None (occurrence: None)
  Receive Date: 20111123
  Receipt Date: 20111117
  Transmission Date: 20120403
  Serious: Yes (Death)
  Sender: FDA-Public Use
  Company Number: US-GILEAD-2011-0046722

PATIENT
  Sex: Male

DRUGS (3)
  1. LETAIRIS [Suspect]
     Indication: PULMONARY HYPERTENSION
     Dosage: 10 MG, UNK
     Route: 048
     Dates: start: 20110721, end: 20111014
  2. LETAIRIS [Suspect]
     Indication: SCLERODERMA
  3. ADCIRCA [Concomitant]

REACTIONS (2)
  - RIGHT VENTRICULAR FAILURE [None]
  - FLUID RETENTION [None]
